FAERS Safety Report 11172454 (Version 2)
Quarter: 2015Q3

REPORT INFORMATION
  Report Type: Spontaneous
  Country: US (occurrence: US)
  Receive Date: 20150608
  Receipt Date: 20150708
  Transmission Date: 20151125
  Serious: Yes (Hospitalization)
  Sender: FDA-Public Use
  Company Number: US-UNITED THERAPEUTICS-UNT-2015-006537

PATIENT
  Age: 54 Year
  Sex: Female
  Weight: 88.89 kg

DRUGS (4)
  1. REMODULIN [Suspect]
     Active Substance: TREPROSTINIL
     Indication: PULMONARY ARTERIAL HYPERTENSION
     Dosage: 0.1145 ?G/KG, CONTINUING
     Route: 041
     Dates: start: 20131209
  2. TRACLEER [Concomitant]
     Active Substance: BOSENTAN
     Indication: PRODUCT USED FOR UNKNOWN INDICATION
  3. REVATIO [Concomitant]
     Active Substance: SILDENAFIL CITRATE
     Indication: PRODUCT USED FOR UNKNOWN INDICATION
  4. REMODULIN [Suspect]
     Active Substance: TREPROSTINIL
     Dosage: 0.1145 ?G/KG, CONTINUING
     Route: 041
     Dates: start: 20131227

REACTIONS (2)
  - Suicidal ideation [Unknown]
  - Mental disorder [Unknown]

NARRATIVE: CASE EVENT DATE: 20150524
